FAERS Safety Report 6414169-0 (Version None)
Quarter: 2009Q4

REPORT INFORMATION
  Report Type: 
  Country: None (occurrence: None)
  Receive Date: 20091026
  Receipt Date: 20091014
  Transmission Date: 20100525
  Serious: Yes (Hospitalization)
  Sender: FDA-Public Use
  Company Number: CO-PFIZER INC-2007056335

PATIENT
  Age: 66 Year

DRUGS (12)
  1. SUNITINIB MALATE [Suspect]
     Indication: RENAL CELL CARCINOMA
     Dosage: 50 MG, 1X/DAY
     Route: 048
     Dates: start: 20060517, end: 20070628
  2. SUNITINIB MALATE [Suspect]
     Dosage: 37.5 MG, 1X/DAY
     Route: 048
     Dates: start: 20070731, end: 20070820
  3. FUROSEMIDE [Concomitant]
     Route: 048
     Dates: start: 20070221
  4. ALLOPURINOL [Concomitant]
     Route: 048
     Dates: start: 20061115
  5. GLIBENCLAMIDE [Concomitant]
     Route: 048
     Dates: start: 20070414
  6. LEVOTHYROXINE SODIUM [Concomitant]
     Route: 048
     Dates: start: 20061115
  7. LOVASTATIN [Concomitant]
     Route: 048
     Dates: start: 20070425
  8. OMEPRAZOLE [Concomitant]
     Route: 048
     Dates: start: 20060401
  9. LIDOCAINE [Concomitant]
     Route: 061
     Dates: start: 20061229
  10. PRAZSOIN HCL [Concomitant]
     Route: 048
     Dates: start: 20060601
  11. NYSTATIN [Concomitant]
     Route: 061
     Dates: start: 20061229
  12. SUCRALFATE [Concomitant]
     Route: 061
     Dates: start: 20061229

REACTIONS (1)
  - ANGIOEDEMA [None]
